FAERS Safety Report 9193867 (Version 3)
Quarter: 2013Q2

REPORT INFORMATION
  Report Type: Spontaneous
  Country: IR (occurrence: None)
  Receive Date: 20130313
  Receipt Date: 20130424
  Transmission Date: 20140414
  Serious: Yes (Death)
  Sender: FDA-Public Use
  Company Number: 0236712

PATIENT
  Age: 82 Year
  Sex: Male
  Weight: 82 kg

DRUGS (2)
  1. TACHOSIL [Suspect]
     Indication: TISSUE SEALING
     Dates: start: 20130223, end: 20130224
  2. OTHER CHEMOTHERAPEUTICS [Concomitant]

REACTIONS (4)
  - Post procedural discharge [None]
  - Off label use [None]
  - Sepsis [None]
  - Device failure [None]
